FAERS Safety Report 18104635 (Version 1)
Quarter: 2020Q3

REPORT INFORMATION
  Report Type: Spontaneous
  Country: US (occurrence: US)
  Receive Date: 20200803
  Receipt Date: 20200803
  Transmission Date: 20201103
  Serious: Yes (Hospitalization)
  Sender: FDA-Public Use
  Company Number: None

PATIENT
  Age: 63 Year
  Sex: Female
  Weight: 59.4 kg

DRUGS (1)
  1. MAGNESIUM CITRATE CHERRY FLAVOR [Suspect]
     Active Substance: MAGNESIUM CITRATE
     Indication: CONSTIPATION
     Dosage: ?          QUANTITY:10 OUNCE(S);OTHER FREQUENCY:ONE TIME;?
     Route: 048
     Dates: start: 20200801, end: 20200801

REACTIONS (7)
  - Pruritus [None]
  - Dyspepsia [None]
  - Erythema [None]
  - Urticaria [None]
  - Feeling hot [None]
  - Cognitive disorder [None]
  - Limb discomfort [None]

NARRATIVE: CASE EVENT DATE: 20200801
